FAERS Safety Report 18348097 (Version 1)
Quarter: 2020Q4

REPORT INFORMATION
  Report Type: Spontaneous
  Country: US (occurrence: US)
  Receive Date: 20201006
  Receipt Date: 20201006
  Transmission Date: 20210114
  Serious: No
  Sender: FDA-Public Use
  Company Number: US-SA-2020SA269676

PATIENT

DRUGS (2)
  1. AUBAGIO [Suspect]
     Active Substance: TERIFLUNOMIDE
     Indication: MULTIPLE SCLEROSIS
     Dosage: 14 MG, QD
     Route: 048
     Dates: start: 20200324, end: 2020
  2. COPAXONE [Concomitant]
     Active Substance: GLATIRAMER ACETATE

REACTIONS (2)
  - Adverse drug reaction [Unknown]
  - Pain [Unknown]

NARRATIVE: CASE EVENT DATE: 2020
